FAERS Safety Report 4433258-3 (Version None)
Quarter: 2004Q3

REPORT INFORMATION
  Report Type: 
  Country: None (occurrence: None)
  Receive Date: 20040824
  Receipt Date: 20040816
  Transmission Date: 20050211
  Serious: Yes (Hospitalization, Other)
  Sender: FDA-Public Use
  Company Number: WAES 0408USA00622

PATIENT
  Age: 48 Year
  Sex: Male
  Weight: 90.7194 kg

DRUGS (11)
  1. DECADRON [Suspect]
     Indication: NAUSEA
     Dosage: 20 MG/Q3W/PO
     Route: 048
     Dates: start: 20040611
  2. INFUSION (FORM) XYOTAX [Suspect]
     Indication: NON-SMALL CELL LUNG CANCER STAGE IV
     Dosage: 210 MG/M[2]/Q3W/IV
     Route: 042
     Dates: start: 20040611, end: 20040702
  3. INFUSION (FORM) CARBOPLATIN [Suspect]
     Indication: NON-SMALL CELL LUNG CANCER STAGE IV
     Dosage: 650 MG/Q3W/IV
     Route: 042
     Dates: start: 20040611, end: 20040702
  4. COUMADIN [Concomitant]
  5. LOTRISONE [Concomitant]
  6. NEXIUM [Concomitant]
  7. WELLBUTRIN [Concomitant]
  8. FELODIPINE [Concomitant]
  9. HYDROCHLOROTHIAZIDE [Concomitant]
  10. MELOXICAM [Concomitant]
  11. SIMVASTATIN [Concomitant]

REACTIONS (3)
  - DIABETES MELLITUS [None]
  - DIABETIC KETOACIDOSIS [None]
  - HYPERGLYCAEMIA [None]
